FAERS Safety Report 22395379 (Version 1)
Quarter: 2023Q2

REPORT INFORMATION
  Report Type: Spontaneous
  Country: US (occurrence: US)
  Receive Date: 20230601
  Receipt Date: 20230601
  Transmission Date: 20230722
  Serious: No
  Sender: FDA-Public Use
  Company Number: US-APIL-2312549US

PATIENT
  Age: 63 Year
  Sex: Female

DRUGS (2)
  1. UBRELVY [Suspect]
     Active Substance: UBROGEPANT
     Indication: Migraine
     Dosage: UNK, PRN
     Route: 048
     Dates: start: 2020, end: 2021
  2. UBRELVY [Suspect]
     Active Substance: UBROGEPANT
     Dosage: 200 MG, BID
     Route: 048
     Dates: start: 2021

REACTIONS (2)
  - Headache [Unknown]
  - Drug ineffective [Unknown]

NARRATIVE: CASE EVENT DATE: 20230421
